FAERS Safety Report 6897193-3 (Version None)
Quarter: 2010Q3

REPORT INFORMATION
  Report Type: 
  Country: None (occurrence: None)
  Receive Date: 20100802
  Receipt Date: 20070421
  Transmission Date: 20110219
  Serious: No
  Sender: FDA-Public Use
  Company Number: US-PFIZER INC-2007032935

PATIENT
  Sex: Female
  Weight: 65.909 kg

DRUGS (2)
  1. LYRICA [Suspect]
     Indication: NERVE INJURY
     Dates: start: 20070301
  2. INSULIN [Concomitant]

REACTIONS (1)
  - ABDOMINAL PAIN UPPER [None]
